FAERS Safety Report 5254069-5 (Version None)
Quarter: 2007Q1

REPORT INFORMATION
  Report Type: 
  Country: None (occurrence: None)
  Receive Date: 20070302
  Receipt Date: 20070220
  Transmission Date: 20070707
  Serious: Yes (Hospitalization, Disabling, Other)
  Sender: FDA-Public Use
  Company Number: US-JNJFOC-20070201494

PATIENT
  Age: 30 Year
  Sex: Male

DRUGS (17)
  1. PREZISTA [Suspect]
     Indication: HIV INFECTION
     Route: 048
  2. MK-0518 [Concomitant]
     Indication: HIV INFECTION
     Route: 048
  3. NORVIR [Concomitant]
     Indication: HIV INFECTION
     Route: 065
  4. VIREAD [Concomitant]
     Indication: HIV INFECTION
     Route: 065
  5. ZIAGEN [Concomitant]
     Indication: HIV INFECTION
     Route: 065
  6. DARAPRIM [Concomitant]
     Route: 065
  7. CLINDAMYCIN [Concomitant]
     Route: 065
  8. VITAMINS [Concomitant]
     Route: 065
  9. DIFLUCAN [Concomitant]
     Route: 065
  10. LEUCOVORIN CALCIUM [Concomitant]
     Route: 065
  11. LORTAB [Concomitant]
     Route: 065
  12. PHENERGAN HCL [Concomitant]
     Route: 065
  13. RECOMBINATE [Concomitant]
     Route: 065
  14. RESTORIL [Concomitant]
     Route: 065
  15. VASOTEC [Concomitant]
     Route: 065
  16. VASOTEC [Concomitant]
     Route: 065
  17. ZITHROMAX [Concomitant]
     Route: 065

REACTIONS (2)
  - ENCEPHALITIS CYTOMEGALOVIRUS [None]
  - PROGRESSIVE MULTIFOCAL LEUKOENCEPHALOPATHY [None]
